FAERS Safety Report 7782206-7 (Version None)
Quarter: 2011Q3

REPORT INFORMATION
  Report Type: 
  Country: None (occurrence: None)
  Receive Date: 20110927
  Receipt Date: 20110921
  Transmission Date: 20111222
  Serious: Yes (Hospitalization)
  Sender: FDA-Public Use
  Company Number: US-ABBOTT-11P-163-0857125-00

PATIENT
  Age: 55 Year
  Sex: Male
  Weight: 71.278 kg

DRUGS (6)
  1. CELEBREX [Concomitant]
     Indication: PRODUCT USED FOR UNKNOWN INDICATION
  2. LITHIUM [Concomitant]
     Indication: PRODUCT USED FOR UNKNOWN INDICATION
  3. ANDROGEL [Suspect]
     Indication: BLOOD TESTOSTERONE DECREASED
     Dosage: 4 PUMPS DAILY
     Dates: start: 20110910
  4. NEURONTIN [Concomitant]
     Indication: PRODUCT USED FOR UNKNOWN INDICATION
  5. SYNTHROID [Concomitant]
     Indication: PRODUCT USED FOR UNKNOWN INDICATION
     Dates: start: 20110701
  6. SYMAX [Concomitant]
     Indication: PRODUCT USED FOR UNKNOWN INDICATION

REACTIONS (10)
  - CONFUSIONAL STATE [None]
  - FEELING COLD [None]
  - FEELING HOT [None]
  - DECREASED APPETITE [None]
  - INSOMNIA [None]
  - DYSARTHRIA [None]
  - NAUSEA [None]
  - DIZZINESS [None]
  - MEMORY IMPAIRMENT [None]
  - UNEVALUABLE EVENT [None]
